FAERS Safety Report 7319982-3 (Version None)
Quarter: 2011Q1

REPORT INFORMATION
  Report Type: 
  Country: None (occurrence: None)
  Receive Date: 20110228
  Receipt Date: 20110225
  Transmission Date: 20110831
  Serious: Yes (Death)
  Sender: FDA-Public Use
  Company Number: PHHY2011BR15586

PATIENT
  Sex: Female

DRUGS (3)
  1. DIOVAN HCT [Suspect]
     Dosage: 160 MG VALS AND 12.5 MG HYDR
     Route: 048
  2. DIOVAN AMLO FIX [Suspect]
     Dosage: 320 MG VALS AND 5 MG AMLO
     Route: 048
  3. RASILEZ [Suspect]
     Dosage: 300 MG, UNK
     Route: 048

REACTIONS (1)
  - DEATH [None]
